FAERS Safety Report 14656443 (Version 1)
Quarter: 2018Q1

REPORT INFORMATION
  Report Type: Other
  Country: HU (occurrence: HU)
  Receive Date: 20180319
  Receipt Date: 20180319
  Transmission Date: 20180509
  Serious: Yes (Life-Threatening, Hospitalization, Other)
  Sender: FDA-Public Use
  Company Number: HU-CHIESI USA INC.-HU-2018CHI000059

PATIENT
  Age: 31 Year
  Sex: Male

DRUGS (13)
  1. LINEZOLID. [Concomitant]
     Active Substance: LINEZOLID
     Indication: ENDOCARDITIS STAPHYLOCOCCAL
     Dosage: UNK
  2. LINEZOLID. [Concomitant]
     Active Substance: LINEZOLID
     Indication: STAPHYLOCOCCAL SEPSIS
  3. TOBRAMYCIN. [Suspect]
     Active Substance: TOBRAMYCIN
     Indication: ENDOCARDITIS STAPHYLOCOCCAL
  4. VANCOMYCIN [Suspect]
     Active Substance: VANCOMYCIN
     Indication: STAPHYLOCOCCAL SEPSIS
  5. METRONIDAZOL AL [Concomitant]
     Indication: ENDOCARDITIS STAPHYLOCOCCAL
  6. METRONIDAZOL AL [Concomitant]
     Indication: STAPHYLOCOCCAL SEPSIS
  7. RIFAMPICIN [Suspect]
     Active Substance: RIFAMPIN
     Indication: STAPHYLOCOCCAL SEPSIS
     Dosage: 300-600 MG, QD
     Route: 048
  8. RIFAMPICIN [Suspect]
     Active Substance: RIFAMPIN
     Indication: ENDOCARDITIS STAPHYLOCOCCAL
  9. CEFTAZIDIME. [Concomitant]
     Active Substance: CEFTAZIDIME
     Indication: PNEUMONIA
     Dosage: UNK
  10. TOBRAMYCIN. [Suspect]
     Active Substance: TOBRAMYCIN
     Indication: PNEUMONIA
     Dosage: UNK
     Route: 065
  11. TOBRAMYCIN. [Suspect]
     Active Substance: TOBRAMYCIN
     Indication: STAPHYLOCOCCAL SEPSIS
  12. VANCOMYCIN [Suspect]
     Active Substance: VANCOMYCIN
     Indication: ENDOCARDITIS STAPHYLOCOCCAL
     Dosage: UNK, QD
     Route: 042
  13. METRONIDAZOL AL [Concomitant]
     Indication: PNEUMONIA
     Dosage: UNK

REACTIONS (1)
  - Drug ineffective [Recovered/Resolved]
